FAERS Safety Report 5445779-5 (Version None)
Quarter: 2007Q3

REPORT INFORMATION
  Report Type: 
  Country: None (occurrence: None)
  Receive Date: 20070904
  Receipt Date: 20070817
  Transmission Date: 20080115
  Serious: Yes (Other)
  Sender: FDA-Public Use
  Company Number: 2007RR-09367

PATIENT
  Age: 4 Year
  Sex: Male

DRUGS (6)
  1. FLUCONAZOLE [Suspect]
     Dosage: 100 MG, QD
  2. ALL-TRANS RETINOIC ACID (ALL-TRANS RETINOIC ACID) [Suspect]
     Dosage: 45 MG/M2, QD
  3. CYTARABINE [Concomitant]
  4. DAUNORUBICIN HCL [Concomitant]
  5. MEROPENEM (MEROPENEM) [Concomitant]
  6. AMPHOTERICIN B [Concomitant]

REACTIONS (4)
  - DRUG INTERACTION [None]
  - HEADACHE [None]
  - PAPILLOEDEMA [None]
  - VOMITING [None]
